FAERS Safety Report 5840650-9 (Version None)
Quarter: 2008Q3

REPORT INFORMATION
  Report Type: 
  Country: None (occurrence: None)
  Receive Date: 20080811
  Receipt Date: 20080729
  Transmission Date: 20090109
  Serious: Yes (Other)
  Sender: FDA-Public Use
  Company Number: PHHY2008DE16352

PATIENT
  Sex: Male

DRUGS (4)
  1. ZOMETA [Suspect]
     Indication: PLASMACYTOMA
     Dosage: UNK
     Dates: start: 20050101
  2. CHEMOTHERAPEUTICS,OTHER [Concomitant]
     Dosage: ALEXANIAN 1; 6 CYCLES
     Dates: start: 20050101, end: 20050801
  3. CHEMOTHERAPEUTICS,OTHER [Concomitant]
     Dosage: ALEXANIAN 1; 4 CYCLES
     Dates: start: 20070801, end: 20080101
  4. MARCUMAR [Concomitant]

REACTIONS (5)
  - CATHETER PLACEMENT [None]
  - MALIGNANT NEOPLASM PROGRESSION [None]
  - ORAL SURGERY [None]
  - OSTEONECROSIS [None]
  - VENOUS THROMBOSIS [None]
